FAERS Safety Report 8283846-1 (Version None)
Quarter: 2012Q2

REPORT INFORMATION
  Report Type: 
  Country: None (occurrence: None)
  Receive Date: 20120413
  Receipt Date: 20111031
  Transmission Date: 20120825
  Serious: No
  Sender: FDA-Public Use
  Company Number: US-ASTRAZENECA-2011SE65711

PATIENT
  Age: 68 Year
  Sex: Male

DRUGS (7)
  1. FLUTICASONE FUROATE [Concomitant]
     Indication: SINUS DISORDER
  2. FLECAINIDE ACETATE [Concomitant]
     Indication: HEART RATE ABNORMAL
  3. ASPIRIN [Concomitant]
  4. ATENOLOL [Concomitant]
     Indication: CARDIAC DISORDER
  5. NEXIUM [Suspect]
     Indication: GASTROOESOPHAGEAL REFLUX DISEASE
     Route: 048
     Dates: start: 20010101
  6. ALLEGRA [Concomitant]
     Indication: HYPERSENSITIVITY
  7. CIALIS [Concomitant]
     Indication: ERECTILE DYSFUNCTION

REACTIONS (4)
  - WEIGHT DECREASED [None]
  - INCORRECT DRUG ADMINISTRATION DURATION [None]
  - HYPERCHLORHYDRIA [None]
  - THERAPY CESSATION [None]
